FAERS Safety Report 4798971-7 (Version None)
Quarter: 2005Q4

REPORT INFORMATION
  Report Type: 
  Country: None (occurrence: None)
  Receive Date: 20051011
  Receipt Date: 20050926
  Transmission Date: 20060501
  Serious: Yes (Hospitalization)
  Sender: FDA-Public Use
  Company Number: 215444

PATIENT
  Age: 29 Year
  Sex: Female

DRUGS (7)
  1. XOLAIR [Suspect]
     Indication: ASTHMA
     Dosage: 2/WEEK SUBCUTANEOUS
     Route: 058
     Dates: start: 20041106
  2. ANTIBIOTIC (ANTIBIOTIC) [Concomitant]
  3. BRONCHODILATOR(BRONCHODILATOR NOS) [Concomitant]
  4. FLIXOTIDE (FLUTICASONE PROPIONATE) [Concomitant]
  5. FORMOTEROL (FORMOTEROL FUMARATE) [Concomitant]
  6. STEROIDS (STEROID NOS) [Concomitant]
  7. TIOTROPIUM(TIOTROPIUM BROMIDE) [Concomitant]

REACTIONS (30)
  - ADRENOCORTICAL INSUFFICIENCY ACUTE [None]
  - ASTHMA [None]
  - BRADYCARDIA [None]
  - CATHETER RELATED COMPLICATION [None]
  - CATHETER SITE INFLAMMATION [None]
  - CONDITION AGGRAVATED [None]
  - DEEP VEIN THROMBOSIS [None]
  - DISEASE RECURRENCE [None]
  - DRUG INEFFECTIVE [None]
  - DRUG RESISTANCE [None]
  - DRUG SPECIFIC ANTIBODY PRESENT [None]
  - DRY SKIN [None]
  - FALL [None]
  - GASTROENTERITIS [None]
  - HYPOGLYCAEMIA [None]
  - INFLUENZA LIKE ILLNESS [None]
  - LOSS OF CONSCIOUSNESS [None]
  - NAUSEA [None]
  - NEUTROPENIA [None]
  - OCCUPATIONAL PROBLEM ENVIRONMENTAL [None]
  - PULMONARY EMBOLISM [None]
  - PULMONARY INFARCTION [None]
  - RASH PUSTULAR [None]
  - RHINITIS [None]
  - SINUSITIS [None]
  - SOMNOLENCE [None]
  - STAPHYLOCOCCAL INFECTION [None]
  - SUBCLAVIAN VEIN THROMBOSIS [None]
  - URTICARIA PHYSICAL [None]
  - URTICARIA THERMAL [None]
